FAERS Safety Report 23588324 (Version 2)
Quarter: 2024Q2

REPORT INFORMATION
  Report Type: Spontaneous
  Country: BR (occurrence: BR)
  Receive Date: 20240302
  Receipt Date: 20240403
  Transmission Date: 20240716
  Serious: Yes (Hospitalization, Other)
  Sender: FDA-Public Use
  Company Number: BR-AUROBINDO-AUR-APL-2024-008863

PATIENT
  Age: 56 Year
  Sex: Male
  Weight: 86 kg

DRUGS (18)
  1. OXACILLIN [Suspect]
     Active Substance: OXACILLIN SODIUM
     Indication: Staphylococcal infection
     Dosage: 2 GRAM, 4/4 HOURS
     Route: 042
  2. GABAPENTIN [Suspect]
     Active Substance: GABAPENTIN
     Indication: Staphylococcal infection
     Dosage: UNK
     Route: 048
  3. QUETIAPINE [Suspect]
     Active Substance: QUETIAPINE
     Indication: Staphylococcal infection
     Dosage: UNK
     Route: 048
  4. ASPIRIN [Suspect]
     Active Substance: ASPIRIN
     Indication: Staphylococcal infection
     Dosage: UNK
     Route: 048
  5. HEPARIN [Suspect]
     Active Substance: HEPARIN SODIUM
     Indication: Staphylococcal infection
     Dosage: UNK
     Route: 058
  6. DIPYRONE [Concomitant]
     Active Substance: DIPYRONE
     Indication: Staphylococcal infection
     Dosage: UNK
     Route: 042
  7. TRAMADOL [Concomitant]
     Active Substance: TRAMADOL\TRAMADOL HYDROCHLORIDE
     Indication: Staphylococcal infection
     Dosage: UNK
     Route: 042
  8. PANTOPRAZOLE [Concomitant]
     Active Substance: PANTOPRAZOLE
     Indication: Staphylococcal infection
     Dosage: UNK
     Route: 042
  9. FUROSEMIDE [Concomitant]
     Active Substance: FUROSEMIDE
     Indication: Staphylococcal infection
     Dosage: UNK
     Route: 042
  10. NPH INSULIN [Concomitant]
     Active Substance: INSULIN BEEF
     Indication: Staphylococcal infection
     Dosage: UNK
     Route: 065
  11. AMITRIPTYLINE [Concomitant]
     Active Substance: AMITRIPTYLINE
     Indication: Staphylococcal infection
     Dosage: UNK
     Route: 048
  12. ROSUVASTATIN [Concomitant]
     Active Substance: ROSUVASTATIN
     Indication: Staphylococcal infection
     Dosage: UNK
     Route: 048
  13. TRIMETAZIDINE [Concomitant]
     Active Substance: TRIMETAZIDINE
     Indication: Staphylococcal infection
     Dosage: UNK
     Route: 048
  14. BISOPROLOL [Concomitant]
     Active Substance: BISOPROLOL\BISOPROLOL FUMARATE
     Indication: Staphylococcal infection
     Dosage: UNK
     Route: 048
  15. ISOSORBIDE [Concomitant]
     Active Substance: ISOSORBIDE
     Indication: Staphylococcal infection
     Dosage: UNK
     Route: 048
  16. SIMETHICONE (DIMETHICONE) [Concomitant]
     Active Substance: DIMETHICONE
     Indication: Staphylococcal infection
     Dosage: UNK
     Route: 048
  17. FOLIC ACID [Concomitant]
     Active Substance: FOLIC ACID
     Indication: Staphylococcal infection
     Dosage: UNK
     Route: 048
  18. CYANOCOBALAMIN\PYRIDOXINE HYDROCHLORIDE\RIBOFLAVIN\SODIUM PANTOTHENATE [Concomitant]
     Active Substance: CYANOCOBALAMIN\PYRIDOXINE HYDROCHLORIDE\RIBOFLAVIN\SODIUM PANTOTHENATE\THIAMINE HYDROCHLORIDE\VITAMI
     Indication: Staphylococcal infection
     Dosage: UNK
     Route: 048

REACTIONS (1)
  - Cutaneous vasculitis [Recovered/Resolved]
